FAERS Safety Report 7777475-3 (Version None)
Quarter: 2011Q3

REPORT INFORMATION
  Report Type: 
  Country: None (occurrence: None)
  Receive Date: 20110926
  Receipt Date: 20110916
  Transmission Date: 20111222
  Serious: Yes (Hospitalization)
  Sender: FDA-Public Use
  Company Number: US-EISAI INC-E7389-01538-SPO-US

PATIENT
  Sex: Female
  Weight: 79 kg

DRUGS (1)
  1. HALAVEN [Suspect]
     Indication: BREAST CANCER
     Route: 041
     Dates: start: 20110401, end: 20110901

REACTIONS (3)
  - PULMONARY EMBOLISM [None]
  - ALVEOLITIS ALLERGIC [None]
  - DYSPNOEA [None]
